FAERS Safety Report 5491402-3 (Version None)
Quarter: 2007Q4

REPORT INFORMATION
  Report Type: 
  Country: None (occurrence: None)
  Receive Date: 20071018
  Receipt Date: 20071003
  Transmission Date: 20080405
  Serious: Yes (Death)
  Sender: FDA-Public Use
  Company Number: 2007001467

PATIENT
  Age: 59 Year
  Sex: Male

DRUGS (1)
  1. TARCEVA (ERLOTINIB) (TABLET) (ERLOTINIB), TARCEVA (ERLOTINIB) (TABLET) [Suspect]
     Indication: NON-SMALL CELL LUNG CANCER METASTATIC
     Dosage: (150 MG QD), ORAL
     Route: 048
     Dates: start: 20070509, end: 20070625

REACTIONS (2)
  - DISEASE PROGRESSION [None]
  - RASH [None]
